FAERS Safety Report 7342092-6 (Version None)
Quarter: 2011Q1

REPORT INFORMATION
  Report Type: 
  Country: None (occurrence: None)
  Receive Date: 20110309
  Receipt Date: 20110302
  Transmission Date: 20110831
  Serious: Yes (Other)
  Sender: FDA-Public Use
  Company Number: US-ABBOTT-11P-163-0709765-00

PATIENT
  Sex: Female
  Weight: 78.996 kg

DRUGS (12)
  1. METFORMIN [Concomitant]
     Indication: DIABETES MELLITUS
     Route: 048
  2. TYLENOL [Concomitant]
     Indication: PRODUCT USED FOR UNKNOWN INDICATION
  3. HUMIRA [Suspect]
     Indication: CROHN'S DISEASE
     Dates: start: 20101001
  4. VENOFER [Concomitant]
     Indication: ANAEMIA
     Route: 042
     Dates: start: 20110101
  5. LEVAQUIN [Suspect]
     Indication: SINUSITIS
     Dates: start: 20101201
  6. TEMAZEPAM [Concomitant]
     Indication: INSOMNIA
     Dosage: 1 AT BEDTIME
     Route: 048
  7. AZATHIOPRINE [Concomitant]
     Indication: CROHN'S DISEASE
     Route: 048
  8. INFED [Suspect]
     Indication: ANAEMIA
     Dates: start: 20110101, end: 20110101
  9. RANITIDINE [Concomitant]
     Indication: GASTROOESOPHAGEAL REFLUX DISEASE
     Route: 048
  10. MELATONIN [Concomitant]
     Indication: INSOMNIA
     Dosage: 1 AT BEDTIME
  11. ERYTHROMYCIN [Suspect]
     Indication: SINUSITIS
     Dates: start: 20101201, end: 20101201
  12. VITAMIN D [Concomitant]
     Indication: PRODUCT USED FOR UNKNOWN INDICATION
     Route: 048

REACTIONS (16)
  - OTITIS MEDIA [None]
  - FURUNCLE [None]
  - SKIN BACTERIAL INFECTION [None]
  - HEADACHE [None]
  - ANAPHYLACTIC REACTION [None]
  - DYSKINESIA [None]
  - DRUG INEFFECTIVE [None]
  - TREMOR [None]
  - SKIN DISCOLOURATION [None]
  - ILL-DEFINED DISORDER [None]
  - BACK PAIN [None]
  - VOMITING [None]
  - DYSPNOEA [None]
  - SINUSITIS [None]
  - SINUS HEADACHE [None]
  - ANAEMIA [None]
